FAERS Safety Report 18503231 (Version 1)
Quarter: 2020Q4

REPORT INFORMATION
  Report Type: Spontaneous
  Country: US (occurrence: US)
  Receive Date: 20201113
  Receipt Date: 20201113
  Transmission Date: 20210114
  Serious: Yes (Other)
  Sender: FDA-Public Use
  Company Number: US-ELI_LILLY_AND_COMPANY-US202011003718

PATIENT
  Sex: Male

DRUGS (2)
  1. HUMALOG [Suspect]
     Active Substance: INSULIN LISPRO
     Dosage: 2 U, PRN
     Route: 058
  2. HUMALOG [Suspect]
     Active Substance: INSULIN LISPRO
     Indication: DIABETES MELLITUS
     Dosage: 2 U, PRN
     Route: 058

REACTIONS (9)
  - Neoplasm malignant [Recovering/Resolving]
  - Malaise [Recovering/Resolving]
  - Cardiac disorder [Recovering/Resolving]
  - Immunodeficiency [Recovering/Resolving]
  - Eating disorder [Recovering/Resolving]
  - Blood glucose decreased [Recovering/Resolving]
  - Hepatic neoplasm [Recovering/Resolving]
  - Fatigue [Recovering/Resolving]
  - Device failure [Recovering/Resolving]
